FAERS Safety Report 5820223-4 (Version None)
Quarter: 2008Q3

REPORT INFORMATION
  Report Type: 
  Country: None (occurrence: None)
  Receive Date: 20080724
  Receipt Date: 20080723
  Transmission Date: 20090109
  Serious: Yes (Hospitalization)
  Sender: FDA-Public Use
  Company Number: PHEH1999US01297

PATIENT
  Sex: Male

DRUGS (10)
  1. RAD 666 RAD+ [Suspect]
     Dosage: 0.5 MG, BID
     Route: 048
     Dates: start: 19990301
  2. NEORAL [Suspect]
     Route: 048
     Dates: start: 19990301
  3. PREDNISONE TAB [Concomitant]
  4. BACTRIM [Concomitant]
  5. ACYCLOVIR [Concomitant]
  6. NYSTATIN [Concomitant]
  7. PROZAC [Concomitant]
  8. CLONIDINE [Concomitant]
  9. PEPCID [Concomitant]
  10. METOPROLOL TARTRATE [Concomitant]

REACTIONS (2)
  - CONVULSION [None]
  - DRUG LEVEL INCREASED [None]
